FAERS Safety Report 8478782 (Version 4)
Quarter: 2012Q4

REPORT INFORMATION
  Report Type: 
  Country: US (occurrence: US)
  Receive Date: 20120327
  Receipt Date: 20121016
  Transmission Date: 20130627
  Serious: Yes (Hospitalization, Other)
  Sender: FDA-Public Use
  Company Number: US-US-EMD SERONO, INC.-7121094

PATIENT
  Age: 61 None
  Sex: Female
  Weight: 43 kg

DRUGS (11)
  1. REBIF [Suspect]
     Indication: MULTIPLE SCLEROSIS
     Route: 058
     Dates: start: 20091006, end: 20120225
  2. REBIF [Suspect]
     Route: 058
     Dates: start: 20120504
  3. ALBUTEROL INHALER [Concomitant]
     Indication: BRONCHITIS
  4. LISINOPRIL [Concomitant]
     Indication: HYPERTENSION
     Dates: start: 2007
  5. AMITRIPTYLINE [Concomitant]
     Indication: SLEEP DISORDER
  6. AMBIEN [Concomitant]
     Indication: SLEEP DISORDER
  7. BUTALBITAL [Concomitant]
     Indication: HEADACHE
  8. CITALOPRAM [Concomitant]
     Indication: DEPRESSION
  9. CYCLOBENZAPRINE [Concomitant]
     Indication: MUSCLE SPASMS
  10. MECLIZINE [Concomitant]
     Indication: DIZZINESS
  11. TRAMADOL [Concomitant]
     Indication: MYALGIA

REACTIONS (4)
  - Oesophageal carcinoma [Recovered/Resolved]
  - Cerebrovascular accident [Recovered/Resolved with Sequelae]
  - Hypertension [Recovered/Resolved]
  - Hiatus hernia [Not Recovered/Not Resolved]
